FAERS Safety Report 8565360-9 (Version None)
Quarter: 2012Q3

REPORT INFORMATION
  Report Type: 
  Country: None (occurrence: None)
  Receive Date: 20120803
  Receipt Date: 20120720
  Transmission Date: 20120928
  Serious: Yes (Other)
  Sender: FDA-Public Use
  Company Number: AU-ROCHE-1095972

PATIENT
  Age: 45 Year
  Sex: Female

DRUGS (17)
  1. TAMOXIFEN CITRATE [Concomitant]
     Dates: start: 20060101
  2. GEMCITABINE HYDROCHLORIDE [Concomitant]
     Dates: start: 20100301, end: 20101201
  3. FLUOROURACIL [Concomitant]
     Dates: start: 20111001
  4. ANASTROZOLE [Concomitant]
     Dates: start: 20111201
  5. ZOLADEX [Concomitant]
     Dates: start: 20060101
  6. DOXORUBICIN HYDROCHLORIDE [Concomitant]
  7. PACLITAXEL [Concomitant]
     Dates: start: 20100301, end: 20101201
  8. CAPECITABINE [Concomitant]
     Dates: start: 20110201, end: 20110901
  9. METHOTREXATE [Concomitant]
     Dates: start: 20111001
  10. TRASTUZUMAB EMTANSINE [Suspect]
     Indication: BREAST CANCER
     Dates: start: 20120201
  11. CYCLOPHOSPHAMIDE [Concomitant]
     Dates: start: 20111001
  12. CYCLOPHOSPHAMIDE [Concomitant]
  13. VINORELBINE [Concomitant]
     Dates: start: 20101201
  14. LAPATINIB [Concomitant]
     Dates: start: 20110201, end: 20110901
  15. HERCEPTIN [Suspect]
     Dates: start: 20111001, end: 20120201
  16. DOCETAXEL [Concomitant]
  17. HERCEPTIN [Suspect]
     Indication: BREAST CANCER
     Route: 065
     Dates: start: 20030101

REACTIONS (2)
  - LIVER DISORDER [None]
  - DISEASE RECURRENCE [None]
